FAERS Safety Report 5236910-5 (Version None)
Quarter: 2007Q1

REPORT INFORMATION
  Report Type: 
  Country: None (occurrence: None)
  Receive Date: 20070213
  Receipt Date: 20070202
  Transmission Date: 20070707
  Serious: Yes (Other)
  Sender: FDA-Public Use
  Company Number: VE-JNJFOC-20070201680

PATIENT
  Sex: Male
  Weight: 86 kg

DRUGS (4)
  1. INFLIXIMAB [Suspect]
     Route: 042
  2. INFLIXIMAB [Suspect]
     Indication: PSORIASIS
     Dosage: 4 INFUSIONS IN 2006
     Route: 042
  3. DIAZEPAM [Concomitant]
     Route: 048
  4. DICLOFENAC SODIUM [Concomitant]
     Indication: ARTHRALGIA
     Route: 048

REACTIONS (5)
  - DIZZINESS [None]
  - DYSPNOEA [None]
  - INFUSION RELATED REACTION [None]
  - SKIN BURNING SENSATION [None]
  - VISION BLURRED [None]
